FAERS Safety Report 8086654-X (Version None)
Quarter: 2012Q1

REPORT INFORMATION
  Report Type: 
  Country: None (occurrence: None)
  Receive Date: 20120128
  Receipt Date: 20110517
  Transmission Date: 20120608
  Serious: No
  Sender: FDA-Public Use
  Company Number: US-ABBOTT-11P-163-0726603-00

PATIENT
  Age: 28 Year
  Sex: Female

DRUGS (12)
  1. METHOTREXATE [Concomitant]
     Indication: PRODUCT USED FOR UNKNOWN INDICATION
     Dosage: WEEKLY
  2. DICYCLOMINE [Concomitant]
     Indication: GASTRIC DISORDER
  3. DICYCLOMINE [Concomitant]
     Indication: DIARRHOEA
  4. HUMIRA [Suspect]
     Indication: RHEUMATOID ARTHRITIS
     Dates: start: 20110402
  5. VITAMIN B COMPLEX CAP [Concomitant]
     Indication: PRODUCT USED FOR UNKNOWN INDICATION
  6. IRON [Concomitant]
     Indication: PRODUCT USED FOR UNKNOWN INDICATION
  7. ASACOL [Concomitant]
     Indication: DIARRHOEA
  8. LABETAOL [Concomitant]
     Indication: HYPERTENSION
  9. FOLIC ACID [Concomitant]
     Indication: PRODUCT USED FOR UNKNOWN INDICATION
  10. ASACOL [Concomitant]
     Indication: GASTRIC DISORDER
  11. VITAMIN B-12 [Concomitant]
     Indication: PRODUCT USED FOR UNKNOWN INDICATION
  12. DITROPAN [Concomitant]
     Indication: URINARY TRACT DISORDER

REACTIONS (2)
  - INJECTION SITE PAIN [None]
  - INJECTION SITE HAEMORRHAGE [None]
